FAERS Safety Report 8746434 (Version 2)
Quarter: 2012Q4

REPORT INFORMATION
  Report Type: 
  Country: US (occurrence: US)
  Receive Date: 20120827
  Receipt Date: 20120831
  Transmission Date: 20130627
  Serious: Yes (Death, Hospitalization)
  Sender: FDA-Public Use
  Company Number: US-B.I. PHARMACEUTICALS,INC./RIDGEFIELD-2012-BP-20721BP

PATIENT
  Age: 91 Year
  Sex: Female

DRUGS (4)
  1. PRADAXA [Suspect]
     Indication: ATRIAL FIBRILLATION
     Dosage: 300 mg
     Route: 048
     Dates: start: 20120807, end: 20120820
  2. AMIODARONE [Concomitant]
     Indication: ARRHYTHMIA
  3. DILTIAZEM [Concomitant]
     Indication: ARRHYTHMIA
  4. BACTRIM [Concomitant]
     Indication: URINARY TRACT INFECTION

REACTIONS (2)
  - Shock haemorrhagic [Fatal]
  - Gastrointestinal haemorrhage [Fatal]
